FAERS Safety Report 20517669 (Version 1)
Quarter: 2022Q1

REPORT INFORMATION
  Report Type: Spontaneous
  Country: US (occurrence: US)
  Receive Date: 20220225
  Receipt Date: 20220225
  Transmission Date: 20220423
  Serious: Yes (Other)
  Sender: FDA-Public Use
  Company Number: US-GLAXOSMITHKLINE-USCH2022006788

PATIENT
  Sex: Female

DRUGS (2)
  1. THERAFLU FLU AND SORE THROAT [Suspect]
     Active Substance: ACETAMINOPHEN\PHENIRAMINE MALEATE\PHENYLEPHRINE HYDROCHLORIDE
     Indication: Oropharyngeal pain
     Dosage: 1 DF
     Dates: start: 20220113, end: 20220114
  2. THERAFLU FLU AND SORE THROAT [Suspect]
     Active Substance: ACETAMINOPHEN\PHENIRAMINE MALEATE\PHENYLEPHRINE HYDROCHLORIDE
     Indication: Nasopharyngitis
     Dosage: 1 DF
     Dates: start: 20220212

REACTIONS (4)
  - Rash [Unknown]
  - Chest pain [Unknown]
  - Swelling face [Unknown]
  - Urticaria [Unknown]
